FAERS Safety Report 12980431 (Version 1)
Quarter: 2016Q4

REPORT INFORMATION
  Report Type: Spontaneous
  Country: CA (occurrence: CA)
  Receive Date: 20161128
  Receipt Date: 20161128
  Transmission Date: 20170207
  Serious: Yes (Other)
  Sender: FDA-Public Use
  Company Number: CA-ABBVIE-16P-028-1792670-00

PATIENT
  Age: 64 Year
  Sex: Male

DRUGS (3)
  1. MAVIK [Suspect]
     Active Substance: TRANDOLAPRIL
     Indication: HYPERTENSION
     Route: 048
  2. RAPAFLO [Concomitant]
     Active Substance: SILODOSIN
     Indication: PRODUCT USED FOR UNKNOWN INDICATION
  3. TRIAMTERENE AND HYDROCHLOROTHIAZIDE [Concomitant]
     Active Substance: HYDROCHLOROTHIAZIDE\TRIAMTERENE
     Indication: PRODUCT USED FOR UNKNOWN INDICATION

REACTIONS (3)
  - Abdominal distension [Recovered/Resolved]
  - Urinary retention [Not Recovered/Not Resolved]
  - Abdominal discomfort [Recovered/Resolved]
